FAERS Safety Report 5446244-1 (Version None)
Quarter: 2007Q3

REPORT INFORMATION
  Report Type: 
  Country: None (occurrence: None)
  Receive Date: 20070731
  Receipt Date: 20070329
  Transmission Date: 20080115
  Serious: Yes (Other)
  Sender: FDA-Public Use
  Company Number: US-2007-011305

PATIENT
  Age: 86 Year
  Sex: Female
  Weight: 61.2 kg

DRUGS (1)
  1. MAGNEVIST [Suspect]
     Indication: NUCLEAR MAGNETIC RESONANCE IMAGING BRAIN
     Dosage: 15 ML, 1 DOSE, INTRAVENOUS
     Route: 042
     Dates: start: 20070328, end: 20070328

REACTIONS (6)
  - BLOOD PRESSURE INCREASED [None]
  - COLD SWEAT [None]
  - ERYTHEMA [None]
  - MALAISE [None]
  - TREMOR [None]
  - URTICARIA [None]
